FAERS Safety Report 8536661-5 (Version None)
Quarter: 2012Q3

REPORT INFORMATION
  Report Type: 
  Country: None (occurrence: None)
  Receive Date: 20120725
  Receipt Date: 20120716
  Transmission Date: 20120928
  Serious: Yes (Other)
  Sender: FDA-Public Use
  Company Number: BR-AMGEN-BRASP2012044301

PATIENT
  Age: 77 Year
  Sex: Male
  Weight: 64 kg

DRUGS (10)
  1. ISOSORBIDE MONONITRATE [Concomitant]
     Indication: CARDIAC DISORDER
     Dosage: 2 UNK, UNK
     Route: 048
  2. ASPIRIN [Concomitant]
     Indication: PRODUCT USED FOR UNKNOWN INDICATION
     Dosage: 2 UNK, UNK
     Route: 048
  3. HEMAX                              /00909301/ [Concomitant]
     Indication: HAEMODIALYSIS
  4. ENDOFOLIN [Concomitant]
     Indication: BLOOD PRESSURE
     Dosage: 2 UNK, UNK
     Route: 048
  5. VITAMIN B COMPLEX CAP [Concomitant]
     Indication: VITAMIN B COMPLEX DEFICIENCY
     Dosage: 2 UNK, UNK
     Route: 048
  6. CARVEDILOL [Concomitant]
     Indication: CARDIAC DISORDER
     Dosage: 2 UNK, UNK
     Route: 048
  7. CINACALCET HYDROCHLORIDE [Suspect]
     Indication: GENERAL PHYSICAL CONDITION ABNORMAL
     Dosage: UNK
     Route: 048
  8. FUROSEMIDE [Concomitant]
     Indication: BLOOD PRESSURE
     Dosage: 3 UNK, UNK
     Route: 048
  9. CARVEDILOL [Concomitant]
     Indication: BLOOD PRESSURE
  10. NORIPURUM [Concomitant]

REACTIONS (2)
  - ARTERIOVENOUS FISTULA SITE COMPLICATION [None]
  - WEIGHT DECREASED [None]
